FAERS Safety Report 15648033 (Version 2)
Quarter: 2018Q4

REPORT INFORMATION
  Report Type: Spontaneous
  Country: CN (occurrence: CN)
  Receive Date: 20181122
  Receipt Date: 20181130
  Transmission Date: 20190205
  Serious: Yes (Hospitalization)
  Sender: FDA-Public Use
  Company Number: CN-BRISTOL-MYERS SQUIBB COMPANY-BMS-2018-088207

PATIENT
  Age: 69 Year
  Sex: Male

DRUGS (1)
  1. OPDIVO [Suspect]
     Active Substance: NIVOLUMAB
     Indication: NON-SMALL CELL LUNG CANCER
     Dosage: 180 MG, Q2WK
     Route: 042

REACTIONS (2)
  - Pyrexia [Recovering/Resolving]
  - Diarrhoea [Recovering/Resolving]
